FAERS Safety Report 5114647-0 (Version None)
Quarter: 2006Q3

REPORT INFORMATION
  Report Type: 
  Country: None (occurrence: None)
  Receive Date: 20060926
  Receipt Date: 20060914
  Transmission Date: 20061208
  Serious: Yes (Death, Other)
  Sender: FDA-Public Use
  Company Number: US-JNJFOC-20050606166

PATIENT
  Sex: Male
  Weight: 62.6 kg

DRUGS (7)
  1. REMICADE [Suspect]
     Indication: RHEUMATOID ARTHRITIS
     Route: 042
  2. METHOTREXATE [Concomitant]
  3. GABAPENTIN [Concomitant]
  4. THEO-DUR [Concomitant]
     Dosage: 400 MG 4.5 TABS DAILY
  5. FOLIC ACID [Concomitant]
  6. ZOCOR [Concomitant]
  7. ULTRAM [Concomitant]

REACTIONS (3)
  - CHRONIC OBSTRUCTIVE PULMONARY DISEASE [None]
  - DEATH [None]
  - GLOTTIS CARCINOMA [None]
